FAERS Safety Report 19803485 (Version 5)
Quarter: 2024Q2

REPORT INFORMATION
  Report Type: Report from Study
  Country: NL (occurrence: NL)
  Receive Date: 20210908
  Receipt Date: 20240422
  Transmission Date: 20240715
  Serious: Yes (Hospitalization, Other)
  Sender: FDA-Public Use
  Company Number: NL-SA-2020SA245775

PATIENT
  Age: 42 Year
  Sex: Male
  Weight: 67 kg

DRUGS (2)
  1. DUPILUMAB [Suspect]
     Active Substance: DUPILUMAB
     Indication: Dermatitis atopic
     Dosage: 600 MG, 1X
     Route: 058
  2. DUPILUMAB [Suspect]
     Active Substance: DUPILUMAB
     Dosage: 300 MG, QOW
     Route: 058

REACTIONS (3)
  - Uveitis [Recovered/Resolved]
  - Macular detachment [Recovered/Resolved]
  - Vogt-Koyanagi-Harada disease [Recovered/Resolved]
